FAERS Safety Report 12778878 (Version 1)
Quarter: 2016Q3

REPORT INFORMATION
  Report Type: Spontaneous
  Country: US (occurrence: US)
  Receive Date: 20160926
  Receipt Date: 20160926
  Transmission Date: 20161109
  Serious: No
  Sender: FDA-Public Use
  Company Number: US-JAZZ-2016-US-011041

PATIENT
  Sex: Female

DRUGS (9)
  1. LACTOFERRIN [Concomitant]
     Active Substance: LACTOFERRIN
  2. PRENATAL [Concomitant]
     Active Substance: VITAMINS
  3. MODAFINIL. [Concomitant]
     Active Substance: MODAFINIL
  4. MAGNESIUM [Concomitant]
     Active Substance: MAGNESIUM
  5. FLONASE [Concomitant]
     Active Substance: FLUTICASONE PROPIONATE
  6. XYREM [Suspect]
     Active Substance: SODIUM OXYBATE
     Indication: PRODUCT USED FOR UNKNOWN INDICATION
     Dosage: 2.25 G, BID
     Route: 048
     Dates: start: 201406
  7. POTASSIUM CITRATE. [Concomitant]
     Active Substance: POTASSIUM CITRATE
  8. IRON [Concomitant]
     Active Substance: IRON
  9. VITAMIN D [Concomitant]
     Active Substance: CHOLECALCIFEROL

REACTIONS (3)
  - Infection [Recovered/Resolved]
  - Therapeutic response unexpected [Unknown]
  - Pre-existing condition improved [Unknown]
